FAERS Safety Report 4375799-3 (Version None)
Quarter: 2004Q2

REPORT INFORMATION
  Report Type: 
  Country: None (occurrence: None)
  Receive Date: 20040611
  Receipt Date: 20040602
  Transmission Date: 20050107
  Serious: Yes (Other)
  Sender: FDA-Public Use
  Company Number: PHFR2004GB02340

PATIENT
  Age: 26 Year
  Sex: Female
  Weight: 72 kg

DRUGS (4)
  1. CARBAMAZEPINE [Suspect]
     Indication: DEPRESSION
     Dosage: 1UKN/PM
     Route: 048
     Dates: start: 20040101
  2. CITALOPRAM HYDROBROMIDE [Suspect]
     Indication: DEPRESSION
     Dosage: 1UKN/AM
     Route: 048
     Dates: start: 20040101
  3. AMITRIPTYLINE HCL [Concomitant]
     Dosage: 1UKN/NIGHT
     Route: 065
     Dates: start: 20040326
  4. METRONIDAZOLE [Concomitant]
     Dosage: UNK, BID
     Route: 065
     Dates: end: 20040428

REACTIONS (2)
  - COAGULATION TIME PROLONGED [None]
  - CONTUSION [None]
